FAERS Safety Report 5086861-4 (Version None)
Quarter: 2006Q3

REPORT INFORMATION
  Report Type: 
  Country: None (occurrence: None)
  Receive Date: 20060818
  Receipt Date: 20060807
  Transmission Date: 20061208
  Serious: Yes (Hospitalization, Other)
  Sender: FDA-Public Use
  Company Number: WAES 0210USA03002

PATIENT
  Age: 88 Year
  Sex: Female

DRUGS (15)
  1. TAB ETORICOXIB 90 MG [Suspect]
     Indication: OSTEOARTHRITIS
     Dosage: 90 MG DAILY PO
     Route: 048
     Dates: start: 20021010, end: 20021027
  2. TAB PLACEBO (UNSPECIFIED) [Suspect]
     Indication: OSTEOARTHRITIS
     Dosage: PO
     Route: 048
     Dates: start: 20021010, end: 20021027
  3. FOSAMAX [Suspect]
     Indication: OSTEOPENIA
     Dosage: 70 MG WKY PO
     Route: 048
     Dates: start: 20010726, end: 20021028
  4. ASPIRIN [Suspect]
     Dosage: 81 MG DAILY PO
     Route: 048
     Dates: start: 20010927, end: 20021028
  5. ATARAX [Concomitant]
  6. BEXTRA [Concomitant]
  7. DARVOCET [Concomitant]
  8. LIPITOR [Concomitant]
  9. METAMUCIL [Concomitant]
  10. OS-CAL [Concomitant]
  11. PLENDIL [Concomitant]
  12. PRAVACHOL [Concomitant]
  13. ATENOLOL [Concomitant]
  14. GLUCOSAMINE [Concomitant]
  15. MECLIZINE [Concomitant]

REACTIONS (9)
  - BLOOD PRESSURE IMMEASURABLE [None]
  - DIARRHOEA [None]
  - DIZZINESS [None]
  - DYSPNOEA [None]
  - GASTRIC ULCER HAEMORRHAGE [None]
  - GASTRITIS EROSIVE [None]
  - HAEMATOCRIT DECREASED [None]
  - HAEMOGLOBIN DECREASED [None]
  - OCCULT BLOOD POSITIVE [None]
